FAERS Safety Report 13137535 (Version 1)
Quarter: 2017Q1

REPORT INFORMATION
  Report Type: Spontaneous
  Country: US (occurrence: US)
  Receive Date: 20170122
  Receipt Date: 20170122
  Transmission Date: 20170428
  Serious: Yes (Hospitalization)
  Sender: FDA-Public Use
  Company Number: None

PATIENT
  Age: 58 Year
  Sex: Female

DRUGS (7)
  1. DOXYCYCL HYC [Concomitant]
  2. NEUPOGEN [Suspect]
     Active Substance: FILGRASTIM
     Route: 058
  3. LANTUS [Concomitant]
     Active Substance: INSULIN GLARGINE
  4. CLINDAMYCIN. [Concomitant]
     Active Substance: CLINDAMYCIN
  5. SILVERSULFA CR [Concomitant]
  6. CIPROFLOXACIN. [Concomitant]
     Active Substance: CIPROFLOXACIN
  7. DAKINS FULL [Concomitant]
     Active Substance: SODIUM HYPOCHLORITE

REACTIONS (1)
  - Hospitalisation [None]
